FAERS Safety Report 23033787 (Version 1)
Quarter: 2023Q4

REPORT INFORMATION
  Report Type: Spontaneous
  Country: JP (occurrence: JP)
  Receive Date: 20231005
  Receipt Date: 20231005
  Transmission Date: 20240110
  Serious: Yes (Other)
  Sender: FDA-Public Use
  Company Number: JP-ELI_LILLY_AND_COMPANY-JP202310000019

PATIENT
  Age: 72 Year
  Sex: Female
  Weight: 43 kg

DRUGS (11)
  1. VERZENIO [Suspect]
     Active Substance: ABEMACICLIB
     Indication: Breast cancer recurrent
     Dosage: 150 MG, BID
     Route: 048
     Dates: start: 20211129, end: 20221128
  2. ARIMIDEX [Concomitant]
     Active Substance: ANASTROZOLE
     Indication: Breast cancer recurrent
     Dosage: 1 MG, DAILY
     Route: 048
     Dates: start: 20211129
  3. LOPERAMIDE HYDROCHLORIDE [Concomitant]
     Active Substance: LOPERAMIDE HYDROCHLORIDE
     Dosage: 1 MG
     Route: 048
     Dates: start: 20211129, end: 20221128
  4. MIYA-BM [Concomitant]
     Active Substance: CLOSTRIDIUM BUTYRICUM SPORES STRAIN M-55
     Dosage: 40 MG, TID
     Route: 048
     Dates: start: 20211129, end: 20230227
  5. METOCLOPRAMIDE [Concomitant]
     Active Substance: METOCLOPRAMIDE
     Indication: Nausea
     Dosage: 5 MG, PRN
     Route: 048
     Dates: start: 20211129
  6. MOSAPRIDE [Concomitant]
     Active Substance: MOSAPRIDE
     Dosage: 15 MG
     Route: 048
     Dates: start: 20211213
  7. CALONAL [Concomitant]
     Active Substance: ACETAMINOPHEN
     Dosage: 200 MG, PRN
     Dates: start: 20211213
  8. LANSOPRAZOLE [Concomitant]
     Active Substance: LANSOPRAZOLE
     Dosage: 30 MG, DAILY
     Route: 048
     Dates: start: 20211213, end: 20230227
  9. CLOTIAZEPAM [Concomitant]
     Active Substance: CLOTIAZEPAM
     Dosage: 5 MG, DAILY
     Route: 048
     Dates: start: 20211213
  10. DENOSUMAB [Concomitant]
     Active Substance: DENOSUMAB
     Dosage: 120 MG
     Route: 058
     Dates: start: 20211203
  11. RIKKUNSHITO [ATRACTYLODES LANCEA RHIZOME;CITR [Concomitant]
     Dosage: 2.5 G, TID
     Route: 048
     Dates: start: 20220912, end: 20221031

REACTIONS (2)
  - COVID-19 pneumonia [Unknown]
  - Interstitial lung disease [Recovering/Resolving]

NARRATIVE: CASE EVENT DATE: 20220813
